FAERS Safety Report 21701322 (Version 1)
Quarter: 2022Q4

REPORT INFORMATION
  Report Type: Spontaneous
  Country: US (occurrence: None)
  Receive Date: 20221208
  Receipt Date: 20221208
  Transmission Date: 20230113
  Serious: No
  Sender: FDA-Public Use
  Company Number: None

PATIENT
  Age: 51 Year
  Sex: Female

DRUGS (1)
  1. VIVITROL [Suspect]
     Active Substance: NALTREXONE
     Indication: Alcoholism
     Dosage: FREQUENCY : MONTHLY;?
     Route: 030
     Dates: start: 20221207

REACTIONS (2)
  - Cough [None]
  - Pyrexia [None]

NARRATIVE: CASE EVENT DATE: 20221208
